FAERS Safety Report 8853062 (Version 2)
Quarter: 2013Q1

REPORT INFORMATION
  Report Type: Spontaneous
  Country: US (occurrence: US)
  Receive Date: 20121022
  Receipt Date: 20130114
  Transmission Date: 20140127
  Serious: No
  Sender: FDA-Public Use
  Company Number: US-009507513-1210USA008756

PATIENT
  Sex: Female

DRUGS (1)
  1. NUVARING [Suspect]
     Indication: DYSMENORRHOEA
     Dosage: 1 RING,EVERY 28 DAYS
     Route: 067
     Dates: start: 201206

REACTIONS (3)
  - Dysmenorrhoea [Recovering/Resolving]
  - Metrorrhagia [Recovering/Resolving]
  - Drug dose omission [Unknown]
